FAERS Safety Report 8136936-8 (Version None)
Quarter: 2012Q1

REPORT INFORMATION
  Report Type: 
  Country: None (occurrence: None)
  Receive Date: 20120214
  Receipt Date: 20120209
  Transmission Date: 20120608
  Serious: Yes (Hospitalization, Disabling, Other)
  Sender: FDA-Public Use
  Company Number: US-MERCK-1107USA03589

PATIENT
  Age: 56 Year
  Sex: Female
  Weight: 63 kg

DRUGS (3)
  1. FOSAMAX [Suspect]
     Route: 065
     Dates: start: 20020101, end: 20090101
  2. IMITREX [Concomitant]
     Indication: MIGRAINE
     Route: 065
  3. FOSAMAX [Suspect]
     Indication: OSTEOPOROSIS
     Route: 048
     Dates: start: 19990101, end: 20091201

REACTIONS (21)
  - FOOT FRACTURE [None]
  - ENDODONTIC PROCEDURE [None]
  - RASH [None]
  - FEMUR FRACTURE [None]
  - HEAD INJURY [None]
  - CYSTOCELE [None]
  - ANXIETY [None]
  - BORDERLINE PERSONALITY DISORDER [None]
  - TYMPANIC MEMBRANE PERFORATION [None]
  - FALL [None]
  - ANAEMIA POSTOPERATIVE [None]
  - URINARY TRACT INFECTION [None]
  - DRUG HYPERSENSITIVITY [None]
  - DEPRESSION [None]
  - TENDON RUPTURE [None]
  - SYNCOPE [None]
  - EAR INFECTION [None]
  - OSTEOARTHRITIS [None]
  - PERIODONTITIS [None]
  - ROTATOR CUFF SYNDROME [None]
  - BACK PAIN [None]
